FAERS Safety Report 11566459 (Version 5)
Quarter: 2016Q1

REPORT INFORMATION
  Report Type: Report from Study
  Country: US (occurrence: US)
  Receive Date: 20150929
  Receipt Date: 20160212
  Transmission Date: 20160525
  Serious: Yes (Other)
  Sender: FDA-Public Use
  Company Number: PHEH2014US022219

PATIENT
  Age: 24 Year
  Sex: Male

DRUGS (1)
  1. SANDOSTATIN LAR DEPOT [Suspect]
     Active Substance: OCTREOTIDE ACETATE
     Indication: ACROMEGALY
     Dosage: 20 MG, QMO (EVERY 4 WEEKS)
     Route: 030
     Dates: start: 20140808

REACTIONS (13)
  - Fall [Unknown]
  - Inappropriate schedule of drug administration [Unknown]
  - Needle issue [Unknown]
  - Underdose [Unknown]
  - Fatigue [Unknown]
  - Product quality issue [Unknown]
  - Cardiac flutter [Recovered/Resolved]
  - Dizziness [Unknown]
  - Syncope [Recovered/Resolved]
  - Wrong technique in product usage process [Unknown]
  - Hypotension [Not Recovered/Not Resolved]
  - Nervousness [Unknown]
  - Injection site haemorrhage [Unknown]

NARRATIVE: CASE EVENT DATE: 20141101
